FAERS Safety Report 10160868 (Version 1)
Quarter: 2014Q2

REPORT INFORMATION
  Report Type: Spontaneous
  Country: GB (occurrence: GB)
  Receive Date: 20140508
  Receipt Date: 20140508
  Transmission Date: 20141212
  Serious: Yes (Other)
  Sender: FDA-Public Use
  Company Number: PHHY2014GB053605

PATIENT
  Age: 73 Year
  Sex: Female

DRUGS (4)
  1. ATENOLOL [Suspect]
     Indication: HYPERTENSION
     Dosage: 1 DF, QD
     Route: 048
  2. BISOPROLOL [Suspect]
     Dosage: 1 DF, QD
     Route: 048
     Dates: start: 2010
  3. BENDROFLUMETHIAZIDE [Concomitant]
  4. RAMIPRIL [Concomitant]

REACTIONS (5)
  - Dyspnoea [Not Recovered/Not Resolved]
  - Muscle spasms [Not Recovered/Not Resolved]
  - Onychoclasis [Not Recovered/Not Resolved]
  - Seborrhoea [Not Recovered/Not Resolved]
  - Alopecia [Not Recovered/Not Resolved]
